FAERS Safety Report 9604123 (Version 2)
Quarter: 2013Q4

REPORT INFORMATION
  Report Type: Report from Study
  Country: VE (occurrence: VE)
  Receive Date: 20131008
  Receipt Date: 20131014
  Transmission Date: 20140711
  Serious: Yes (Other)
  Sender: FDA-Public Use
  Company Number: VE-ROCHE-1286122

PATIENT
  Age: 52 Year
  Sex: Female

DRUGS (5)
  1. XOLAIR [Suspect]
     Indication: ASTHMA
     Route: 058
     Dates: start: 2010
  2. XOLAIR [Suspect]
     Route: 058
     Dates: start: 201307
  3. XOLAIR [Suspect]
     Route: 058
     Dates: start: 20130921
  4. ETOFENAMATE [Concomitant]
     Route: 048
     Dates: start: 201308
  5. ETOFENAMATE [Concomitant]
     Route: 042
     Dates: start: 201308

REACTIONS (1)
  - Blood immunoglobulin E increased [Unknown]
